FAERS Safety Report 12831471 (Version 1)
Quarter: 2016Q4

REPORT INFORMATION
  Report Type: Report from Study
  Country: None (occurrence: BR)
  Receive Date: 20161009
  Receipt Date: 20161009
  Transmission Date: 20170207
  Serious: Yes (Other)
  Sender: FDA-Public Use
  Company Number: BR-ABBVIE-16P-020-1748425-00

PATIENT
  Age: 56 Year
  Sex: Female
  Weight: 79 kg

DRUGS (12)
  1. GLIMEPIRIDE. [Concomitant]
     Active Substance: GLIMEPIRIDE
     Indication: DIABETES MELLITUS
     Route: 048
  2. PREGABALIN. [Concomitant]
     Active Substance: PREGABALIN
     Indication: PAIN
     Route: 048
     Dates: start: 201607
  3. GLIFAGE [Concomitant]
     Active Substance: METFORMIN HYDROCHLORIDE
     Indication: DIABETES MELLITUS
     Route: 048
  4. OMEPRAZOLE. [Concomitant]
     Active Substance: OMEPRAZOLE
     Indication: GASTRIC DISORDER
     Route: 048
     Dates: start: 1994
  5. HUMIRA [Suspect]
     Active Substance: ADALIMUMAB
     Indication: RHEUMATOID ARTHRITIS
     Route: 058
     Dates: start: 20130101
  6. LEFLUNOMIDE. [Concomitant]
     Active Substance: LEFLUNOMIDE
     Indication: ARTHRITIS
     Route: 048
  7. PREDNISONE. [Concomitant]
     Active Substance: PREDNISONE
     Indication: ARTHRITIS
     Route: 048
     Dates: start: 1994
  8. LOSARTAN. [Concomitant]
     Active Substance: LOSARTAN
     Indication: BLOOD PRESSURE ABNORMAL
     Route: 048
     Dates: start: 1994
  9. CALCIUM HYDROCHLORIDE [Concomitant]
     Indication: ARTHRITIS
     Route: 048
     Dates: start: 1994
  10. ALPRAZOLAM. [Concomitant]
     Active Substance: ALPRAZOLAM
     Indication: SLEEP DISORDER THERAPY
     Route: 048
     Dates: start: 2015
  11. VITAMIN D [Concomitant]
     Active Substance: CHOLECALCIFEROL
     Indication: ARTHRITIS
     Route: 048
     Dates: start: 1994
  12. PARACETAMOL [Concomitant]
     Active Substance: ACETAMINOPHEN
     Indication: PAIN
     Route: 048
     Dates: start: 2014

REACTIONS (8)
  - Tooth extraction [Recovered/Resolved]
  - Dental prosthesis placement [Unknown]
  - Gingivitis [Recovered/Resolved]
  - Dysgeusia [Unknown]
  - Dental caries [Recovered/Resolved]
  - Ligament sprain [Recovering/Resolving]
  - Sleep disorder [Unknown]
  - Tooth infection [Recovered/Resolved]

NARRATIVE: CASE EVENT DATE: 201603
